FAERS Safety Report 19248342 (Version 3)
Quarter: 2021Q3

REPORT INFORMATION
  Report Type: Spontaneous
  Country: US (occurrence: US)
  Receive Date: 20210512
  Receipt Date: 20210906
  Transmission Date: 20211014
  Serious: Yes (Other)
  Sender: FDA-Public Use
  Company Number: US-PFIZER INC-2021411451

PATIENT
  Age: 47 Year
  Sex: Female

DRUGS (1)
  1. XELJANZ [Suspect]
     Active Substance: TOFACITINIB CITRATE
     Indication: COLITIS ULCERATIVE
     Dosage: 5 MG, 2X/DAY
     Route: 048
     Dates: start: 2019

REACTIONS (8)
  - Constipation [Unknown]
  - Abdominal discomfort [Unknown]
  - Haematochezia [Unknown]
  - Infrequent bowel movements [Unknown]
  - Diarrhoea [Unknown]
  - Product dose omission in error [Unknown]
  - Condition aggravated [Unknown]
  - Rectal prolapse [Unknown]

NARRATIVE: CASE EVENT DATE: 2021
